FAERS Safety Report 21150872 (Version 1)
Quarter: 2022Q3

REPORT INFORMATION
  Report Type: Spontaneous
  Country: DE (occurrence: DE)
  Receive Date: 20220729
  Receipt Date: 20220729
  Transmission Date: 20221027
  Serious: No
  Sender: FDA-Public Use
  Company Number: DE-UCBSA-2022043732

PATIENT
  Age: 67 Year
  Sex: Male

DRUGS (2)
  1. NEUPRO [Suspect]
     Active Substance: ROTIGOTINE
     Indication: Multiple sclerosis
     Dosage: 3MG
     Route: 062
  2. NEUPRO [Suspect]
     Active Substance: ROTIGOTINE
     Indication: Off label use

REACTIONS (6)
  - Tremor [Not Recovered/Not Resolved]
  - Application site erythema [Not Recovered/Not Resolved]
  - Application site pruritus [Not Recovered/Not Resolved]
  - Product adhesion issue [Unknown]
  - Therapeutic product effect incomplete [Unknown]
  - Off label use [Unknown]
